FAERS Safety Report 4361069-6 (Version None)
Quarter: 2004Q2

REPORT INFORMATION
  Report Type: 
  Country: None (occurrence: None)
  Receive Date: 20040517
  Receipt Date: 20040511
  Transmission Date: 20050107
  Serious: Yes (Hospitalization)
  Sender: FDA-Public Use
  Company Number: 2004-03-1799

PATIENT
  Age: 55 Year
  Sex: Male
  Weight: 68 kg

DRUGS (5)
  1. REBETOL [Suspect]
     Indication: HEPATITIS C
     Dosage: 800 MG ORAL
     Route: 048
     Dates: start: 20020724, end: 20030107
  2. INTRON A (INTERFERON ALFA-2B RECOMBINANT) INJECTABLE POWDER [Suspect]
     Indication: HEPATITIS C
     Dosage: SEE IMAGE
     Route: 030
     Dates: start: 20020724, end: 20020806
  3. INTRON A (INTERFERON ALFA-2B RECOMBINANT) INJECTABLE POWDER [Suspect]
     Indication: HEPATITIS C
     Dosage: SEE IMAGE
     Route: 030
     Dates: start: 20020724, end: 20040315
  4. INTRON A (INTERFERON ALFA-2B RECOMBINANT) INJECTABLE POWDER [Suspect]
     Indication: HEPATITIS C
     Dosage: SEE IMAGE
     Route: 030
     Dates: start: 20020807, end: 20040315
  5. VOLTAREN [Concomitant]

REACTIONS (4)
  - BLOOD CREATINE PHOSPHOKINASE INCREASED [None]
  - BLOOD LACTATE DEHYDROGENASE INCREASED [None]
  - HAEMOLYTIC ANAEMIA [None]
  - MUSCLE TIGHTNESS [None]
